FAERS Safety Report 12990120 (Version 1)
Quarter: 2016Q4

REPORT INFORMATION
  Report Type: Spontaneous
  Country: CN (occurrence: CN)
  Receive Date: 20161201
  Receipt Date: 20161201
  Transmission Date: 20170207
  Serious: Yes (Other)
  Sender: FDA-Public Use
  Company Number: CN-BAYER-2016-223949

PATIENT
  Age: 58 Year
  Sex: Male

DRUGS (3)
  1. NEXAVAR [Suspect]
     Active Substance: SORAFENIB
     Dosage: 400 MG, QD (AT IGHT)
  2. ENTECAVIR. [Concomitant]
     Active Substance: ENTECAVIR
     Indication: HEPATITIS B
  3. NEXAVAR [Suspect]
     Active Substance: SORAFENIB
     Dosage: 400 MG, BID
     Dates: start: 201610

REACTIONS (13)
  - Joint swelling [None]
  - Underdose [None]
  - Peripheral swelling [None]
  - Skin ulcer [None]
  - Arthralgia [None]
  - Hepatic cancer [None]
  - Lymphadenopathy [None]
  - Blood pressure increased [None]
  - Onychoclasis [None]
  - Lymph node pain [None]
  - Onychalgia [None]
  - Nail infection [None]
  - Nail bed inflammation [None]

NARRATIVE: CASE EVENT DATE: 201611
